FAERS Safety Report 7326237-X (Version None)
Quarter: 2011Q1

REPORT INFORMATION
  Report Type: 
  Country: None (occurrence: None)
  Receive Date: 20110302
  Receipt Date: 20110223
  Transmission Date: 20110831
  Serious: Yes (Hospitalization)
  Sender: FDA-Public Use
  Company Number: A0912550A

PATIENT
  Age: 85 Year
  Sex: Female
  Weight: 63 kg

DRUGS (2)
  1. ALKERAN [Suspect]
     Indication: MULTIPLE MYELOMA
     Dosage: 8MG PER DAY
     Route: 048
     Dates: start: 20101231, end: 20110107
  2. UNKNOWN [Concomitant]
     Dosage: 20MG THREE TIMES PER DAY

REACTIONS (2)
  - CELLULITIS [None]
  - NUCLEAR MAGNETIC RESONANCE IMAGING [None]
